FAERS Safety Report 9097116 (Version 1)
Quarter: 2013Q1

REPORT INFORMATION
  Report Type: Spontaneous
  Country: US (occurrence: None)
  Receive Date: 20130125
  Receipt Date: 20130125
  Transmission Date: 20140127
  Serious: Yes (Hospitalization, Other)
  Sender: FDA-Public Use
  Company Number: DAV-AE-MTX-13-08

PATIENT
  Age: 70 Year
  Sex: Female

DRUGS (3)
  1. METHOTREXATE [Suspect]
     Indication: CENTRAL NERVOUS SYSTEM LYMPHOMA
     Route: 042
  2. OMEPRAZOLE [Concomitant]
  3. METOPROL [Concomitant]

REACTIONS (10)
  - Colonic pseudo-obstruction [None]
  - Neutropenia [None]
  - Anaemia [None]
  - Thrombocytopenia [None]
  - Hypokalaemia [None]
  - Proctocolitis [None]
  - Ileus [None]
  - Blood culture positive [None]
  - Yersinia test positive [None]
  - Candida test positive [None]
